FAERS Safety Report 11307489 (Version 2)
Quarter: 2015Q4

REPORT INFORMATION
  Report Type: Spontaneous
  Country: JP (occurrence: JP)
  Receive Date: 20150723
  Receipt Date: 20151007
  Transmission Date: 20160304
  Serious: Yes (Hospitalization)
  Sender: FDA-Public Use
  Company Number: JP-MYLANLABS-2015M1023555

PATIENT

DRUGS (1)
  1. ALENDRONATE SODIUM. [Suspect]
     Active Substance: ALENDRONATE SODIUM
     Indication: OSTEOPOROSIS
     Dosage: 4 YEARS
     Route: 048

REACTIONS (3)
  - Femoral neck fracture [Recovering/Resolving]
  - Bone deformity [Unknown]
  - Exostosis [Unknown]
